FAERS Safety Report 16308290 (Version 1)
Quarter: 2019Q2

REPORT INFORMATION
  Report Type: Spontaneous
  Country: US (occurrence: US)
  Receive Date: 20190514
  Receipt Date: 20190514
  Transmission Date: 20190711
  Serious: Yes (Other)
  Sender: FDA-Public Use
  Company Number: PHEH2019US020533

PATIENT
  Sex: Female

DRUGS (1)
  1. TASIGNA [Suspect]
     Active Substance: NILOTINIB
     Indication: CHRONIC MYELOID LEUKAEMIA
     Dosage: 200 MG, BID
     Route: 065
     Dates: start: 2008

REACTIONS (18)
  - Left ventricular hypertrophy [Unknown]
  - Chronic obstructive pulmonary disease [Unknown]
  - Renal failure [Unknown]
  - Renal impairment [Unknown]
  - Transient ischaemic attack [Unknown]
  - Alopecia [Unknown]
  - Aortic valve incompetence [Unknown]
  - Mitral valve stenosis [Unknown]
  - Mitral valve incompetence [Unknown]
  - Cataract [Unknown]
  - Aortic valve stenosis [Unknown]
  - Neuropathy peripheral [Unknown]
  - Dysarthria [Unknown]
  - Tricuspid valve incompetence [Unknown]
  - Hypothyroidism [Unknown]
  - Cardiac failure congestive [Unknown]
  - Left atrial dilatation [Unknown]
  - Gastrooesophageal reflux disease [Unknown]
